FAERS Safety Report 12080002 (Version 3)
Quarter: 2018Q1

REPORT INFORMATION
  Report Type: Spontaneous
  Country: US (occurrence: US)
  Receive Date: 20160216
  Receipt Date: 20180105
  Transmission Date: 20180508
  Serious: Yes (Hospitalization)
  Sender: FDA-Public Use
  Company Number: US-ACTELION-A-NJ2015-116597

PATIENT
  Age: 43 Year
  Sex: Female
  Weight: 72.11 kg

DRUGS (4)
  1. VELETRI [Suspect]
     Active Substance: EPOPROSTENOL
     Indication: PULMONARY ARTERIAL HYPERTENSION
     Dosage: 49.12 NG/KG, PER MIN
     Route: 042
     Dates: start: 201501
  2. VELETRI [Suspect]
     Active Substance: EPOPROSTENOL
     Dosage: 53.2 NG/KG, PER MIN
     Route: 042
  3. REVATIO [Concomitant]
     Active Substance: SILDENAFIL CITRATE
  4. ADCIRCA [Concomitant]
     Active Substance: TADALAFIL

REACTIONS (8)
  - Chest pain [Unknown]
  - Device occlusion [Unknown]
  - Dizziness [Unknown]
  - Dyspnoea [Unknown]
  - Dyspnoea exertional [Unknown]
  - Device related thrombosis [Unknown]
  - Device alarm issue [Unknown]
  - Palpitations [Unknown]
